FAERS Safety Report 7908532-6 (Version None)
Quarter: 2011Q4

REPORT INFORMATION
  Report Type: 
  Country: None (occurrence: None)
  Receive Date: 20111111
  Receipt Date: 20111107
  Transmission Date: 20120403
  Serious: Yes (Death)
  Sender: FDA-Public Use
  Company Number: PHEH2011US05482

PATIENT
  Sex: Female

DRUGS (3)
  1. CLOZARIL [Suspect]
     Indication: PSYCHOTIC DISORDER
     Dosage: 350 MG, UNK
     Dates: start: 19940101
  2. DEPAKOTE [Concomitant]
  3. EFFEXOR [Concomitant]
     Route: 048

REACTIONS (1)
  - INTESTINAL INFARCTION [None]
